FAERS Safety Report 9529893 (Version 1)
Quarter: 2013Q3

REPORT INFORMATION
  Report Type: Spontaneous
  Country: FR (occurrence: FR)
  Receive Date: 20130917
  Receipt Date: 20130917
  Transmission Date: 20140515
  Serious: Yes (Hospitalization)
  Sender: FDA-Public Use
  Company Number: FR-UCBSA-097207

PATIENT
  Age: 0 None
  Sex: Male
  Weight: 3.51 kg

DRUGS (8)
  1. KEPPRA [Suspect]
     Indication: EPILEPSY
     Dosage: 500 MG
     Route: 064
     Dates: start: 201106, end: 20120306
  2. LAMICTAL [Suspect]
     Indication: EPILEPSY
     Dosage: 200 MG
     Route: 064
     Dates: start: 201106, end: 20120306
  3. URBANYL [Suspect]
     Indication: EPILEPSY
     Dosage: 5 MG
     Route: 064
     Dates: start: 201106, end: 20120306
  4. TRANDATE [Suspect]
     Indication: HYPERTENSION
     Dosage: UNKNOWN DOSE
     Route: 064
     Dates: start: 2011, end: 20120306
  5. LEVOTHYROX [Suspect]
     Indication: HYPOTHYROIDISM
     Dosage: 87.5 MCG/DAY
     Route: 064
     Dates: start: 201106, end: 20120306
  6. INSULIN [Suspect]
     Indication: GESTATIONAL DIABETES
     Dosage: UNKNOWN DOSE
     Route: 064
     Dates: end: 20120306
  7. AMLOR [Concomitant]
     Indication: HYPERTENSION
     Dosage: DOSE: 5 MG/DAY
     Route: 064
     Dates: end: 2011
  8. SPECIAFOLDINE [Concomitant]
     Dosage: DOSE: 5 MG/DAY
     Route: 064
     Dates: end: 2011

REACTIONS (3)
  - Tremor neonatal [Recovered/Resolved]
  - Hypoglycaemia neonatal [Recovered/Resolved]
  - Foetal exposure during pregnancy [Recovered/Resolved]
